FAERS Safety Report 6640566-4 (Version None)
Quarter: 2010Q1

REPORT INFORMATION
  Report Type: 
  Country: None (occurrence: None)
  Receive Date: 20100318
  Receipt Date: 20100310
  Transmission Date: 20100710
  Serious: Yes (Other)
  Sender: FDA-Public Use
  Company Number: AR-BAXTER-2010BH006902

PATIENT
  Sex: Male

DRUGS (1)
  1. HEMOFIL M [Suspect]
     Indication: HAEMOPHILIA
     Route: 065

REACTIONS (2)
  - HIV INFECTION [None]
  - HIV TEST POSITIVE [None]
